FAERS Safety Report 4863197-5 (Version None)
Quarter: 2005Q4

REPORT INFORMATION
  Report Type: 
  Country: None (occurrence: None)
  Receive Date: 20051201
  Receipt Date: 20050722
  Transmission Date: 20060501
  Serious: No
  Sender: FDA-Public Use
  Company Number: 2005PV000532

PATIENT
  Age: 28 Year
  Sex: Male
  Weight: 131.5431 kg

DRUGS (6)
  1. BYETTA [Suspect]
     Indication: DIABETES MELLITUS NON-INSULIN-DEPENDENT
     Dosage: 5 MCG;BID;SC
     Route: 058
     Dates: start: 20050719
  2. AMARYL [Concomitant]
  3. GLUCOPHAGE [Concomitant]
  4. TRICOR [Concomitant]
  5. FISH OIL [Concomitant]
  6. MULTIVITAMIN [Concomitant]

REACTIONS (1)
  - THERAPEUTIC RESPONSE DECREASED [None]
